FAERS Safety Report 16890112 (Version 2)
Quarter: 2020Q1

REPORT INFORMATION
  Report Type: Spontaneous
  Country: US (occurrence: US)
  Receive Date: 20191007
  Receipt Date: 20200127
  Transmission Date: 20200409
  Serious: Yes (Hospitalization, Other)
  Sender: FDA-Public Use
  Company Number: US-BAYER-2019-178645

PATIENT
  Age: 21 Year
  Sex: Female

DRUGS (2)
  1. COLLAGEN [Concomitant]
     Active Substance: COLLAGEN
  2. MIRENA [Suspect]
     Active Substance: LEVONORGESTREL
     Indication: CONTRACEPTION
     Dosage: 20 MCG/24HR, CONT
     Route: 015
     Dates: start: 20190812, end: 20190930

REACTIONS (5)
  - Complication of device removal [None]
  - Device dislocation [Recovered/Resolved]
  - Vaginal haemorrhage [None]
  - Pelvic fluid collection [Recovered/Resolved]
  - Ovarian cyst [None]

NARRATIVE: CASE EVENT DATE: 2019
